FAERS Safety Report 15613410 (Version 4)
Quarter: 2019Q3

REPORT INFORMATION
  Report Type: Spontaneous
  Country: US (occurrence: US)
  Receive Date: 20181113
  Receipt Date: 20190704
  Transmission Date: 20191004
  Serious: Yes (Hospitalization)
  Sender: FDA-Public Use
  Company Number: US-GILEAD-2018-0373658

PATIENT
  Age: 55 Year
  Sex: Female

DRUGS (9)
  1. RIBAVIRIN. [Concomitant]
     Active Substance: RIBAVIRIN
     Dosage: 200MG|ORAL|TAKE 3 TABLETS BY MOUTH EVERY DAY FOR 12 WEEKS WITH EPCLUSA
     Dates: start: 201810
  2. TRAMADOL HYDROCHLORIDE. [Concomitant]
     Active Substance: TRAMADOL HYDROCHLORIDE
     Dosage: UNKNOWN
  3. MELOXICAM. [Concomitant]
     Active Substance: MELOXICAM
     Dosage: UNKNOWN
  4. FUROSEMIDE. [Concomitant]
     Active Substance: FUROSEMIDE
     Dosage: UNKNOWN
  5. RIBAVIRIN. [Concomitant]
     Active Substance: RIBAVIRIN
     Indication: CHRONIC HEPATITIS C
     Dosage: 200 MG
     Route: 048
     Dates: start: 20181012
  6. TYLENOL [Concomitant]
     Active Substance: ACETAMINOPHEN
     Dosage: UNKNOWN
  7. EPCLUSA [Suspect]
     Active Substance: SOFOSBUVIR\VELPATASVIR
     Indication: CHRONIC HEPATITIS C
     Dosage: 1 DF
     Route: 048
     Dates: start: 20181012, end: 201905
  8. SERTRALINE HYDROCHLORIDE. [Concomitant]
     Active Substance: SERTRALINE HYDROCHLORIDE
     Dosage: UNKNOWN
  9. GABAPENTIN. [Concomitant]
     Active Substance: GABAPENTIN

REACTIONS (7)
  - Abdominal pain upper [Not Recovered/Not Resolved]
  - Blood potassium decreased [Recovered/Resolved]
  - Back pain [Not Recovered/Not Resolved]
  - Fluid retention [Recovered/Resolved]
  - Swelling [Recovered/Resolved]
  - Flatulence [Not Recovered/Not Resolved]
  - Intentional dose omission [Recovered/Resolved]

NARRATIVE: CASE EVENT DATE: 201905
